FAERS Safety Report 19893120 (Version 1)
Quarter: 2021Q3

REPORT INFORMATION
  Report Type: Spontaneous
  Country: GB (occurrence: GB)
  Receive Date: 20210929
  Receipt Date: 20210929
  Transmission Date: 20211014
  Serious: Yes (Death, Hospitalization, Other)
  Sender: FDA-Public Use
  Company Number: GB-009507513-2109GBR006212

PATIENT
  Age: 67 Year
  Sex: Female

DRUGS (1)
  1. PEMBROLIZUMAB. [Suspect]
     Active Substance: PEMBROLIZUMAB
     Dosage: CYCLICAL
     Dates: start: 20210811

REACTIONS (1)
  - Intestinal perforation [Fatal]

NARRATIVE: CASE EVENT DATE: 2021
